FAERS Safety Report 4385796-X (Version None)
Quarter: 2004Q2

REPORT INFORMATION
  Report Type: 
  Country: None (occurrence: None)
  Receive Date: 20040623
  Receipt Date: 20040607
  Transmission Date: 20050107
  Serious: Yes (Hospitalization)
  Sender: FDA-Public Use
  Company Number: 2004AP02772

PATIENT
  Age: 42 Year
  Sex: Male
  Weight: 63.5 kg

DRUGS (7)
  1. SEROQUEL [Suspect]
     Indication: SCHIZOPHRENIA
     Dosage: 100 MG TID PO
     Route: 048
  2. LODOPIN [Suspect]
     Indication: SCHIZOPHRENIA
     Dosage: 100 MG TID PO
     Route: 048
  3. BARNETIL [Suspect]
     Indication: SCHIZOPHRENIA
     Dosage: 600 MG BID PO
     Route: 048
  4. CONTOMIN [Suspect]
     Indication: SCHIZOPHRENIA
     Dosage: 100 MG TID PO
     Route: 048
  5. IMPROMEN [Suspect]
     Indication: SCHIZOPHRENIA
     Dosage: 7 MG TID PO
     Route: 048
  6. AKINETON /AUS/ [Suspect]
     Indication: SCHIZOPHRENIA
     Dosage: 1 MG TID PO
     Route: 048
  7. HALOMONTH [Suspect]
     Indication: SCHIZOPHRENIA
     Dosage: 100 MG MONTH IM

REACTIONS (3)
  - RED BLOOD CELL SEDIMENTATION RATE INCREASED [None]
  - WHITE BLOOD CELL COUNT INCREASED [None]
  - XANTHOMA [None]
